FAERS Safety Report 9272929 (Version 1)
Quarter: 2013Q2

REPORT INFORMATION
  Report Type: Spontaneous
  Country: DE (occurrence: DE)
  Receive Date: 20130506
  Receipt Date: 20130506
  Transmission Date: 20140414
  Serious: Yes (Death, Other)
  Sender: FDA-Public Use
  Company Number: DE-009507513-1305DEU001245

PATIENT
  Age: 60 Year
  Sex: Male

DRUGS (1)
  1. CANCIDAS [Suspect]
     Indication: ANTIFUNGAL PROPHYLAXIS

REACTIONS (3)
  - Bronchopulmonary aspergillosis [Fatal]
  - Multi-organ failure [Fatal]
  - Drug ineffective [Unknown]
